FAERS Safety Report 8489027 (Version 3)
Quarter: 2013Q4

REPORT INFORMATION
  Report Type: Spontaneous
  Country: US (occurrence: US)
  Receive Date: 20120402
  Receipt Date: 20131108
  Transmission Date: 20140711
  Serious: Yes (Life-Threatening, Other)
  Sender: FDA-Public Use
  Company Number: US-009507513-1203USA03984

PATIENT
  Age: 55 Year
  Sex: Male

DRUGS (2)
  1. ZOCOR [Suspect]
     Route: 048
  2. LIPITOR [Suspect]
     Dosage: 40 MG, QD

REACTIONS (3)
  - Diabetes mellitus [Unknown]
  - Coronary artery disease [Unknown]
  - Cardiovascular disorder [Unknown]
